FAERS Safety Report 8883253 (Version 1)
Quarter: 2012Q4

REPORT INFORMATION
  Report Type: 
  Country: US (occurrence: US)
  Receive Date: 20121102
  Receipt Date: 20121102
  Transmission Date: 20130627
  Serious: Yes (Death, Life-Threatening, Hospitalization, Disabling, Other)
  Sender: FDA-Public Use
  Company Number: US-GLAXOSMITHKLINE-A0998631A

PATIENT
  Age: 27 Year
  Sex: Female

DRUGS (3)
  1. BENLYSTA [Suspect]
     Indication: SYSTEMIC LUPUS ERYTHEMATOSUS
     Route: 042
  2. PREDNISONE [Concomitant]
  3. CELLCEPT [Concomitant]

REACTIONS (5)
  - Death [Fatal]
  - Pneumonia [Unknown]
  - Pneumothorax [Unknown]
  - Restrictive pulmonary disease [Unknown]
  - Malaise [Unknown]
